FAERS Safety Report 25439958 (Version 4)
Quarter: 2025Q3

REPORT INFORMATION
  Report Type: Report from Study
  Country: KR (occurrence: KR)
  Receive Date: 20250616
  Receipt Date: 20250915
  Transmission Date: 20251021
  Serious: Yes (Other)
  Sender: NOVARTIS
  Company Number: KR-002147023-NVSC2025KR093587

PATIENT
  Age: 77 Year
  Sex: Female

DRUGS (16)
  1. KISQALI [Suspect]
     Active Substance: RIBOCICLIB SUCCINATE
     Indication: Hormone receptor positive HER2 negative breast cancer
     Dosage: 600 MG, QD
     Route: 048
     Dates: start: 20250211, end: 20250303
  2. KISQALI [Suspect]
     Active Substance: RIBOCICLIB SUCCINATE
     Dosage: 600 MG, QD
     Route: 048
     Dates: start: 20250311, end: 20250331
  3. KISQALI [Suspect]
     Active Substance: RIBOCICLIB SUCCINATE
     Dosage: 600 MG, QD
     Route: 048
     Dates: start: 20250408, end: 20250428
  4. KISQALI [Suspect]
     Active Substance: RIBOCICLIB SUCCINATE
     Dosage: 600 MG, QD
     Route: 048
     Dates: start: 20250508, end: 20250528
  5. KISQALI [Suspect]
     Active Substance: RIBOCICLIB SUCCINATE
     Dosage: 600 MG, QD
     Route: 048
     Dates: start: 20250607, end: 20250616
  6. FASLODEX [Concomitant]
     Active Substance: FULVESTRANT
     Indication: Hormone therapy
     Dosage: 500 MG, QD
     Route: 030
     Dates: start: 20250211, end: 20250211
  7. FASLODEX [Concomitant]
     Active Substance: FULVESTRANT
     Dosage: 500 MG, QD
     Route: 030
     Dates: start: 20250225, end: 20250225
  8. FASLODEX [Concomitant]
     Active Substance: FULVESTRANT
     Dosage: 500 MG, QD
     Route: 030
     Dates: start: 20250311, end: 20250311
  9. FASLODEX [Concomitant]
     Active Substance: FULVESTRANT
     Dosage: 500 MG, QD
     Route: 030
     Dates: start: 20250408, end: 20250408
  10. FASLODEX [Concomitant]
     Active Substance: FULVESTRANT
     Dosage: 500 MG, QD
     Route: 030
     Dates: start: 20250508, end: 20250508
  11. FASLODEX [Concomitant]
     Active Substance: FULVESTRANT
     Dosage: 500 MG, QD
     Route: 030
     Dates: start: 20250605, end: 20250605
  12. EMPAGLIFLOZIN\METFORMIN HYDROCHLORIDE [Concomitant]
     Active Substance: EMPAGLIFLOZIN\METFORMIN HYDROCHLORIDE
     Indication: Diabetes mellitus
     Dosage: 1 DOSAGE FORM, QD
     Route: 048
     Dates: start: 20250421
  13. Lzerozet [Concomitant]
     Indication: Dyslipidaemia
     Dosage: 1 DOSAGE FORM, QD
     Route: 048
     Dates: start: 20250421
  14. Rovastar [Concomitant]
     Indication: Dyslipidaemia
     Dosage: 1 DOSAGE FORM, QD
     Route: 048
     Dates: start: 202308, end: 20250420
  15. Teneglip m sr [Concomitant]
     Indication: Diabetes mellitus
     Dosage: 1 DOSAGE FORM, QD
     Route: 048
     Dates: start: 202308, end: 20250420
  16. LINAGLIPTIN [Concomitant]
     Active Substance: LINAGLIPTIN
     Indication: Diabetes mellitus
     Dosage: 5 MG, QD
     Route: 048
     Dates: start: 20250421

REACTIONS (5)
  - Cardiac dysfunction [Not Recovered/Not Resolved]
  - Neutropenia [Recovering/Resolving]
  - Nausea [Not Recovered/Not Resolved]
  - Electrocardiogram T wave abnormal [Recovered/Resolved]
  - Electrocardiogram ST segment abnormal [Recovered/Resolved]

NARRATIVE: CASE EVENT DATE: 20250225
